FAERS Safety Report 24106498 (Version 3)
Quarter: 2024Q3

REPORT INFORMATION
  Report Type: Report from Study
  Country: IT (occurrence: IT)
  Receive Date: 20240717
  Receipt Date: 20240821
  Transmission Date: 20241017
  Serious: Yes (Death, Other)
  Sender: TAKEDA
  Company Number: IT-TAKEDA-2024TUS071544

PATIENT
  Sex: Male

DRUGS (1)
  1. FRUQUINTINIB [Suspect]
     Active Substance: FRUQUINTINIB
     Indication: Colorectal cancer
     Dosage: 5 MILLIGRAM, QD
     Route: 065
     Dates: start: 20240523, end: 20240607

REACTIONS (8)
  - Respiratory failure [Fatal]
  - Colorectal cancer [Fatal]
  - Metastases to lung [Unknown]
  - Haematuria [Unknown]
  - Rectal lesion [Unknown]
  - Hepatic lesion [Unknown]
  - Arthralgia [Unknown]
  - Asthenia [Unknown]

NARRATIVE: CASE EVENT DATE: 20240607
